FAERS Safety Report 8471854-7 (Version None)
Quarter: 2012Q2

REPORT INFORMATION
  Report Type: 
  Country: None (occurrence: None)
  Receive Date: 20120627
  Receipt Date: 20120619
  Transmission Date: 20120825
  Serious: Yes (Hospitalization)
  Sender: FDA-Public Use
  Company Number: US-BAYER-2012-018976

PATIENT
  Age: 22 Year
  Sex: Female
  Weight: 94.331 kg

DRUGS (3)
  1. YAZ [Suspect]
     Indication: CONTRACEPTION
     Dosage: UNK
     Dates: start: 20080331, end: 20090101
  2. ALIMENTARY TRACT AND METABOLISM [Concomitant]
  3. ANTIBIOTICS [Concomitant]
     Indication: GASTROOESOPHAGEAL REFLUX DISEASE
     Route: 042

REACTIONS (7)
  - INJURY [None]
  - MENSTRUAL DISORDER [None]
  - VOMITING [None]
  - CHOLECYSTECTOMY [None]
  - PAIN [None]
  - CHOLECYSTITIS ACUTE [None]
  - ABDOMINAL PAIN UPPER [None]
